FAERS Safety Report 17283550 (Version 2)
Quarter: 2025Q1

REPORT INFORMATION
  Report Type: Report from Study
  Country: GB (occurrence: GB)
  Receive Date: 20200117
  Receipt Date: 20250205
  Transmission Date: 20250408
  Serious: Yes (Hospitalization)
  Sender: NOVARTIS
  Company Number: GB-NOVARTISPH-NVSC2020GB006576

PATIENT
  Sex: Female
  Weight: 95.3 kg

DRUGS (1)
  1. COSENTYX [Suspect]
     Active Substance: SECUKINUMAB
     Indication: Psoriasis
     Dosage: 300 MG, QMO (INJECTION NOS)
     Route: 065
     Dates: start: 20170126

REACTIONS (3)
  - Diverticulitis [Recovered/Resolved]
  - Diverticulum intestinal [Recovered/Resolved]
  - Flank pain [Recovered/Resolved]

NARRATIVE: CASE EVENT DATE: 20171008
